FAERS Safety Report 20884734 (Version 3)
Quarter: 2022Q3

REPORT INFORMATION
  Report Type: Spontaneous
  Country: JP (occurrence: JP)
  Receive Date: 20220527
  Receipt Date: 20220901
  Transmission Date: 20221027
  Serious: Yes (Other)
  Sender: FDA-Public Use
  Company Number: JP-ELI_LILLY_AND_COMPANY-JP202205008975

PATIENT
  Age: 62 Year
  Sex: Female

DRUGS (9)
  1. ZYPREXA [Suspect]
     Active Substance: OLANZAPINE
     Indication: Prophylaxis of nausea and vomiting
     Dosage: 2.5 MG, DAILY
     Route: 048
  2. APREPITANT [Suspect]
     Active Substance: APREPITANT
     Indication: Prophylaxis of nausea and vomiting
     Dosage: 125 MG
     Route: 048
  3. APREPITANT [Suspect]
     Active Substance: APREPITANT
     Dosage: 80 MG
     Route: 048
  4. SODIUM PICOSULFATE [Suspect]
     Active Substance: SODIUM PICOSULFATE
     Indication: Laxative supportive care
     Route: 048
  5. MAGNESIUM OXIDE [Suspect]
     Active Substance: MAGNESIUM OXIDE
     Indication: Laxative supportive care
     Route: 048
  6. EPIRUBICIN [Concomitant]
     Active Substance: EPIRUBICIN
     Indication: Breast cancer
  7. CYCLOPHOSPHAMIDE [Concomitant]
     Active Substance: CYCLOPHOSPHAMIDE
     Indication: Breast cancer
  8. PALONOSETRON [Concomitant]
     Active Substance: PALONOSETRON
     Indication: Prophylaxis of nausea and vomiting
     Dosage: 0.75 MG
     Route: 042
  9. DEXAMETHASONE [Concomitant]
     Active Substance: DEXAMETHASONE
     Indication: Prophylaxis of nausea and vomiting
     Dosage: 9.9 MG
     Route: 042

REACTIONS (1)
  - Epilepsy [Recovered/Resolved]
